FAERS Safety Report 15603302 (Version 4)
Quarter: 2019Q1

REPORT INFORMATION
  Report Type: Spontaneous
  Country: FR (occurrence: FR)
  Receive Date: 20181109
  Receipt Date: 20190131
  Transmission Date: 20190417
  Serious: Yes (Life-Threatening, Hospitalization)
  Sender: FDA-Public Use
  Company Number: FR-CELGENEUS-FRA-20181102608

PATIENT
  Age: 74 Year
  Sex: Male
  Weight: 70 kg

DRUGS (16)
  1. ACTISKENAN [Concomitant]
     Active Substance: MORPHINE SULFATE
     Indication: BACK PAIN
  2. SKENAN [Concomitant]
     Active Substance: MORPHINE SULFATE
     Indication: BONE PAIN
     Dosage: 20 MILLIGRAM
     Route: 048
     Dates: start: 20170329
  3. KARDEGIC [Concomitant]
     Active Substance: ASPIRIN DL-LYSINE
     Indication: SINUS TACHYCARDIA
     Dosage: 75 MILLIGRAM
     Route: 048
     Dates: start: 2016
  4. REVLIMID [Suspect]
     Active Substance: LENALIDOMIDE
     Indication: PLASMA CELL MYELOMA
     Dosage: 25 MILLIGRAM
     Route: 048
     Dates: start: 20160411, end: 20181013
  5. SOTALOL. [Concomitant]
     Active Substance: SOTALOL
     Indication: SINUS TACHYCARDIA
     Dosage: 160 MILLIGRAM
     Route: 048
     Dates: start: 1996
  6. BACTRIM [Concomitant]
     Active Substance: SULFAMETHOXAZOLE\TRIMETHOPRIM
     Indication: ANTIBIOTIC THERAPY
     Route: 048
     Dates: start: 201603
  7. DEXAMETHASONE ORAL [Suspect]
     Active Substance: DEXAMETHASONE
     Indication: PLASMA CELL MYELOMA
     Dosage: 40 MILLIGRAM
     Route: 048
     Dates: start: 20160411, end: 20181009
  8. LEKOVIT [Concomitant]
     Indication: CALCIUM DEFICIENCY
  9. LEDERFOLINE [Concomitant]
     Active Substance: LEUCOVORIN CALCIUM
     Indication: DRUG-INDUCED LIVER INJURY
     Dosage: 25 MILLIGRAM
     Route: 048
     Dates: start: 201603
  10. PARACETAMOL [Concomitant]
     Active Substance: ACETAMINOPHEN
     Indication: BONE PAIN
     Dosage: 5 MILLIGRAM
     Route: 048
     Dates: start: 201603
  11. LEKOVIT [Concomitant]
     Indication: HYPOVITAMINOSIS
     Dosage: 50 MILLIGRAM
     Route: 048
     Dates: start: 20171218
  12. MOVICOL [Concomitant]
     Active Substance: POLYETHYLENE GLYCOL 3350\POTASSIUM CHLORIDE\SODIUM BICARBONATE\SODIUM CHLORIDE
     Indication: CONSTIPATION
     Route: 048
     Dates: start: 20160506
  13. SKENAN [Concomitant]
     Active Substance: MORPHINE SULFATE
     Indication: BACK PAIN
  14. INEXIUM [Concomitant]
     Active Substance: ESOMEPRAZOLE
     Indication: PROPHYLAXIS
     Dosage: 20 MILLIGRAM
     Route: 048
     Dates: start: 2016
  15. VALACICLOVIR [Concomitant]
     Active Substance: VALACYCLOVIR HYDROCHLORIDE
     Indication: INFECTION PROPHYLAXIS
     Dosage: 25 MILLIGRAM
     Route: 048
     Dates: start: 201603
  16. ACTISKENAN [Concomitant]
     Active Substance: MORPHINE SULFATE
     Indication: BONE PAIN
     Dosage: 5 MILLIGRAM
     Route: 048
     Dates: start: 201603

REACTIONS (1)
  - Coronary artery disease [Recovered/Resolved]

NARRATIVE: CASE EVENT DATE: 20181028
